FAERS Safety Report 19060725 (Version 1)
Quarter: 2021Q1

REPORT INFORMATION
  Report Type: Spontaneous
  Country: NL (occurrence: NL)
  Receive Date: 20210326
  Receipt Date: 20210326
  Transmission Date: 20210420
  Serious: Yes (Hospitalization, Other)
  Sender: FDA-Public Use
  Company Number: NL-AUROBINDO-AUR-APL-2021-011828

PATIENT

DRUGS (30)
  1. GIVLAARI [Suspect]
     Active Substance: GIVOSIRAN SODIUM
     Dosage: 182.5 MILLIGRAM, , MONTHLY; WEIGHT: 71.7 KG
     Route: 058
     Dates: start: 20210222
  2. GIVLAARI [Suspect]
     Active Substance: GIVOSIRAN SODIUM
     Dosage: 186.5 MILLIGRAM
     Route: 058
  3. GIVLAARI [Suspect]
     Active Substance: GIVOSIRAN SODIUM
     Indication: PRODUCT USED FOR UNKNOWN INDICATION
     Dosage: 179.5 MILLIGRAM, SINGLE
     Route: 058
     Dates: start: 20200323
  4. DEFERASIROX. [Concomitant]
     Active Substance: DEFERASIROX
     Dosage: 360 MILLIGRAM
     Route: 048
     Dates: start: 20200709
  5. MULTIVITAMIN [Concomitant]
     Active Substance: VITAMINS
     Indication: SUPPLEMENTATION THERAPY
     Dosage: UNK
     Route: 065
  6. GIVLAARI [Suspect]
     Active Substance: GIVOSIRAN SODIUM
     Dosage: 181.5 MILLIGRAM
     Route: 058
     Dates: start: 20201005
  7. GIVLAARI [Suspect]
     Active Substance: GIVOSIRAN SODIUM
     Dosage: 186.3 MILLIGRAM
     Route: 058
     Dates: start: 20201130
  8. GIVLAARI [Suspect]
     Active Substance: GIVOSIRAN SODIUM
     Dosage: 178.5 MILLIGRAM
     Route: 058
     Dates: start: 20200615, end: 20200615
  9. MULTIVITAMIN [Concomitant]
     Active Substance: VITAMINS
     Indication: HYPOVITAMINOSIS
     Dosage: 1000 MILLIGRAM
     Route: 048
     Dates: start: 20200204
  10. TERIPARATIDE [Concomitant]
     Active Substance: TERIPARATIDE
     Indication: OSTEOPOROSIS
     Dosage: 20 MICROGRAM, FOT THE 24 MONTHS
     Route: 065
     Dates: start: 202102
  11. GIVLAARI [Suspect]
     Active Substance: GIVOSIRAN SODIUM
     Dosage: 175.25 MILLIGRAM
     Route: 058
     Dates: start: 20200420, end: 20200420
  12. GIVLAARI [Suspect]
     Active Substance: GIVOSIRAN SODIUM
     Dosage: 186.5 MILLIGRAM
     Route: 058
  13. GIVLAARI [Suspect]
     Active Substance: GIVOSIRAN SODIUM
     Dosage: 186.3 MILLIGRAM
     Route: 058
     Dates: start: 20210125, end: 20210125
  14. METOPROLOL. [Concomitant]
     Active Substance: METOPROLOL
     Dosage: 50 MILLIGRAM
     Route: 048
     Dates: start: 20191209, end: 20200715
  15. AMLODIPINE [Suspect]
     Active Substance: AMLODIPINE BESYLATE
     Indication: HYPERTENSION
     Dosage: 10 MILLIGRAM
     Route: 048
     Dates: start: 20191126
  16. HYDROXYCARBAMID [Concomitant]
     Active Substance: HYDROXYUREA
     Indication: PORPHYRIA ACUTE
     Dosage: 1500 MILLIGRAM
     Route: 048
     Dates: start: 20200723
  17. OMEPRAZOL [Concomitant]
     Active Substance: OMEPRAZOLE
     Dosage: 20 MILLIGRAM
     Route: 048
     Dates: start: 20191106, end: 20200622
  18. LISINOPRIL. [Suspect]
     Active Substance: LISINOPRIL
     Indication: PRODUCT USED FOR UNKNOWN INDICATION
     Dosage: 5 MILLIGRAM
     Route: 065
     Dates: start: 20201228
  19. GIVLAARI [Suspect]
     Active Substance: GIVOSIRAN SODIUM
     Dosage: 184 MILLIGRAM
     Route: 058
     Dates: start: 20201228, end: 20201228
  20. GIVLAARI [Suspect]
     Active Substance: GIVOSIRAN SODIUM
     Dosage: 179.5 MILLIGRAM
     Route: 058
     Dates: start: 20200713
  21. DEFERASIROX. [Concomitant]
     Active Substance: DEFERASIROX
     Indication: IRON OVERLOAD
     Dosage: 720 MILLIGRAM
     Route: 048
     Dates: start: 20191209, end: 20200709
  22. OMEPRAZOL [Concomitant]
     Active Substance: OMEPRAZOLE
     Indication: REFLUX GASTRITIS
     Dosage: 20 MILLIGRAM, TWO TIMES A DAY
     Route: 048
     Dates: start: 20210222
  23. OMEPRAZOL [Concomitant]
     Active Substance: OMEPRAZOLE
     Dosage: 40 MILLIGRAM
     Route: 048
     Dates: start: 20200622, end: 20200811
  24. GIVLAARI [Suspect]
     Active Substance: GIVOSIRAN SODIUM
     Dosage: 173.5 MILLIGRAM
     Route: 058
     Dates: start: 20200518, end: 20200518
  25. PROMETHAZINE [Suspect]
     Active Substance: PROMETHAZINE HYDROCHLORIDE
     Indication: COUGH
     Dosage: UNK
     Route: 065
  26. HYDROXYCARBAMID [Concomitant]
     Active Substance: HYDROXYUREA
     Dosage: 1000 MILLIGRAM
     Route: 048
     Dates: start: 20191119, end: 20200723
  27. MOVICOL [Concomitant]
     Active Substance: POLYETHYLENE GLYCOL 3350\POTASSIUM CHLORIDE\SODIUM BICARBONATE\SODIUM CHLORIDE
     Indication: CONSTIPATION
     Dosage: 13.8 GRAM
     Route: 048
  28. OMEPRAZOL [Concomitant]
     Active Substance: OMEPRAZOLE
     Dosage: 20 MILLIGRAM
     Route: 048
     Dates: start: 20200811, end: 20210222
  29. METOPROLOL. [Concomitant]
     Active Substance: METOPROLOL
     Indication: HYPERTENSION
     Dosage: 100 MILLIGRAM
     Route: 048
     Dates: start: 20200715
  30. METOPROLOL. [Concomitant]
     Active Substance: METOPROLOL
     Dosage: 100 MILLIGRAM
     Route: 048
     Dates: start: 20210111

REACTIONS (23)
  - Respiration abnormal [Not Recovered/Not Resolved]
  - Abdominal pain [Not Recovered/Not Resolved]
  - Pain in extremity [Not Recovered/Not Resolved]
  - Paraesthesia [Not Recovered/Not Resolved]
  - Nausea [Recovered/Resolved]
  - Platelet count decreased [Recovered/Resolved]
  - Malaise [Recovered/Resolved]
  - Cough [Recovered/Resolved]
  - Abdominal pain lower [Recovered/Resolved]
  - Pain in extremity [Recovered/Resolved]
  - Rash [Not Recovered/Not Resolved]
  - Somnolence [Recovered/Resolved]
  - Leukopenia [Recovered/Resolved]
  - Vomiting [Recovered/Resolved]
  - Injection site pain [Recovered/Resolved]
  - Ear pain [Recovered/Resolved]
  - Oedema peripheral [Recovered/Resolved]
  - Injection site erythema [Recovered/Resolved]
  - Fatigue [Recovered/Resolved]
  - Renal failure [Recovered/Resolved]
  - Burning sensation [Recovered/Resolved]
  - Dyspepsia [Recovered/Resolved]
  - Pain in jaw [Recovered/Resolved]

NARRATIVE: CASE EVENT DATE: 20200323
